FAERS Safety Report 4706487-9 (Version None)
Quarter: 2005Q3

REPORT INFORMATION
  Report Type: 
  Country: None (occurrence: None)
  Receive Date: 20050705
  Receipt Date: 20050627
  Transmission Date: 20060218
  Serious: Yes (Death)
  Sender: FDA-Public Use
  Company Number: GB-GLAXOSMITHKLINE-B0385759A

PATIENT

DRUGS (1)
  1. ARIXTRA [Suspect]
     Route: 065

REACTIONS (2)
  - DEATH [None]
  - PULMONARY EMBOLISM [None]
